FAERS Safety Report 6141711-X (Version None)
Quarter: 2009Q2

REPORT INFORMATION
  Report Type: 
  Country: None (occurrence: None)
  Receive Date: 20090402
  Receipt Date: 20090330
  Transmission Date: 20091009
  Serious: Yes (Hospitalization)
  Sender: FDA-Public Use
  Company Number: US-BRISTOL-MYERS SQUIBB COMPANY-14567366

PATIENT
  Age: 55 Year
  Sex: Female

DRUGS (3)
  1. COUMADIN [Suspect]
     Dosage: RECENT INFUSION - 15MAR2009
  2. HEPARIN SODIUM [Suspect]
  3. LOVENOX [Suspect]
     Indication: THROMBOSIS PROPHYLAXIS
     Dosage: INJECTION. RECENT INFUSION - 15MAR09

REACTIONS (3)
  - INJECTION SITE MASS [None]
  - INTERNATIONAL NORMALISED RATIO FLUCTUATION [None]
  - PULMONARY EMBOLISM [None]
